FAERS Safety Report 12090501 (Version 1)
Quarter: 2016Q1

REPORT INFORMATION
  Report Type: Spontaneous
  Country: US (occurrence: US)
  Receive Date: 20160218
  Receipt Date: 20160218
  Transmission Date: 20160526
  Serious: No
  Sender: FDA-Public Use
  Company Number: US-BAUSCH-BL-2015-030944

PATIENT
  Sex: Male
  Weight: 81.72 kg

DRUGS (1)
  1. DILTIER [Suspect]
     Active Substance: DILTIAZEM HYDROCHLORIDE
     Indication: ATRIAL FIBRILLATION
     Route: 048
     Dates: start: 20151214

REACTIONS (8)
  - Discomfort [Recovering/Resolving]
  - Swelling [Recovering/Resolving]
  - Unevaluable event [Recovering/Resolving]
  - Muscle strain [Recovering/Resolving]
  - Abdominal pain upper [Recovering/Resolving]
  - Influenza [Recovering/Resolving]
  - Rhinorrhoea [Recovering/Resolving]
  - Abdominal distension [Recovering/Resolving]

NARRATIVE: CASE EVENT DATE: 20151215
